FAERS Safety Report 6653548-3 (Version None)
Quarter: 2010Q1

REPORT INFORMATION
  Report Type: 
  Country: None (occurrence: None)
  Receive Date: 20100326
  Receipt Date: 20100318
  Transmission Date: 20100710
  Serious: Yes (Hospitalization)
  Sender: FDA-Public Use
  Company Number: US-SANOFI-AVENTIS-2010SA017062

PATIENT
  Age: 62 Year
  Sex: Female
  Weight: 55.33 kg

DRUGS (9)
  1. PLAVIX [Suspect]
     Route: 048
     Dates: start: 20060101
  2. ASPIRIN [Concomitant]
     Route: 048
     Dates: start: 20060101, end: 20070101
  3. ASPIRIN [Concomitant]
     Route: 048
     Dates: start: 20091212
  4. ACIPHEX [Concomitant]
     Route: 048
     Dates: start: 20060101
  5. ATENOLOL [Concomitant]
     Route: 048
     Dates: start: 20060101
  6. ISOSORBIDE MONONITRATE [Concomitant]
     Route: 048
  7. VYTORIN [Concomitant]
     Dosage: 10/20MG
     Route: 048
  8. LOVAZA [Concomitant]
     Route: 048
  9. MULTI-VITAMINS [Concomitant]
     Route: 048

REACTIONS (3)
  - CONTUSION [None]
  - PAIN IN EXTREMITY [None]
  - SPINAL DISORDER [None]
